FAERS Safety Report 8416224-2 (Version None)
Quarter: 2012Q2

REPORT INFORMATION
  Report Type: 
  Country: None (occurrence: None)
  Receive Date: 20120530
  Receipt Date: 20120514
  Transmission Date: 20120825
  Serious: Yes (Other)
  Sender: FDA-Public Use
  Company Number: 2012SP025614

PATIENT
  Age: 65 Year
  Sex: Male
  Weight: 67 kg

DRUGS (15)
  1. LENDORMIN [Concomitant]
  2. NIZORAL CREAM [Concomitant]
  3. OLOPATADINE HCL [Concomitant]
  4. PRIMPERAN TAB [Concomitant]
  5. GLIMEPIRIDE [Concomitant]
  6. PREDNISOLONE [Concomitant]
  7. AMLODIPINE [Concomitant]
  8. CITICOLINE [Concomitant]
  9. TELAVIC (ANTIVIRALS NOS) [Suspect]
     Indication: HEPATITIS C
     Dosage: 2250 MG;QD;PO
     Route: 048
     Dates: start: 20120216, end: 20120426
  10. REBETOL [Suspect]
     Indication: HEPATITIS C
     Dosage: 800 MG;QD;PO 600 MG;QD;PO 400 MG;QD;PO
     Route: 048
     Dates: start: 20120316, end: 20120404
  11. REBETOL [Suspect]
     Indication: HEPATITIS C
     Dosage: 800 MG;QD;PO 600 MG;QD;PO 400 MG;QD;PO
     Route: 048
     Dates: start: 20120405
  12. REBETOL [Suspect]
     Indication: HEPATITIS C
     Dosage: 800 MG;QD;PO 600 MG;QD;PO 400 MG;QD;PO
     Route: 048
     Dates: start: 20120216, end: 20120315
  13. PEG-INTRON [Suspect]
     Indication: HEPATITIS C
     Dosage: 1.5 MCG/KG;QW;SC
     Route: 058
     Dates: start: 20120216
  14. LANSOPRAZOLE [Concomitant]
  15. RIKKUNSHI-TO [Concomitant]

REACTIONS (10)
  - ACUTE RESPIRATORY DISTRESS SYNDROME [None]
  - HAEMOGLOBIN DECREASED [None]
  - RASH [None]
  - MALAISE [None]
  - HEADACHE [None]
  - NAUSEA [None]
  - FATIGUE [None]
  - WHITE BLOOD CELL COUNT DECREASED [None]
  - DRUG ERUPTION [None]
  - PRURITUS [None]
